FAERS Safety Report 18240461 (Version 1)
Quarter: 2020Q3

REPORT INFORMATION
  Report Type: Other
  Country: DE (occurrence: DE)
  Receive Date: 20200908
  Receipt Date: 20200908
  Transmission Date: 20201103
  Serious: Yes (Other)
  Sender: FDA-Public Use
  Company Number: DE-FDC LIMITED-2089475

PATIENT
  Age: 55 Year
  Sex: Female

DRUGS (2)
  1. FILGASTRIM [Concomitant]
     Active Substance: FILGRASTIM
     Route: 065
  2. CIPROFLOXACIN. [Suspect]
     Active Substance: CIPROFLOXACIN
     Indication: INFECTION
     Route: 065

REACTIONS (1)
  - Rash maculo-papular [Unknown]
